FAERS Safety Report 7155682-0 (Version None)
Quarter: 2010Q4

REPORT INFORMATION
  Report Type: 
  Country: None (occurrence: None)
  Receive Date: 20101214
  Receipt Date: 20101206
  Transmission Date: 20110411
  Serious: Yes (Other)
  Sender: FDA-Public Use
  Company Number: US-TEVA-235158USA

PATIENT
  Sex: Female

DRUGS (2)
  1. CLARAVIS [Suspect]
     Dosage: 1 CAPSULE ON ODD DAYS
     Route: 048
     Dates: start: 20090930, end: 20100316
  2. CLARAVIS [Suspect]
     Dosage: 2 ON EVEN DAYS
     Route: 048
     Dates: start: 20090930, end: 20100316

REACTIONS (1)
  - PREGNANCY [None]
